APPROVED DRUG PRODUCT: ALLERFED
Active Ingredient: PSEUDOEPHEDRINE HYDROCHLORIDE; TRIPROLIDINE HYDROCHLORIDE
Strength: 60MG;2.5MG
Dosage Form/Route: TABLET;ORAL
Application: A088860 | Product #001
Applicant: PRIVATE FORMULATIONS INC
Approved: Jan 31, 1985 | RLD: No | RS: No | Type: DISCN